FAERS Safety Report 4386951-5 (Version None)
Quarter: 2004Q2

REPORT INFORMATION
  Report Type: 
  Country: None (occurrence: None)
  Receive Date: 20040630
  Receipt Date: 20030411
  Transmission Date: 20050107
  Serious: Yes (Death, Life-Threatening, Hospitalization, Other)
  Sender: FDA-Public Use
  Company Number: US-BRISTOL-MYERS SQUIBB COMPANY-12240982

PATIENT
  Age: 36 Year
  Sex: Male
  Weight: 78 kg

DRUGS (17)
  1. ATAZANAVIR [Suspect]
     Indication: HIV INFECTION
     Dosage: INTER.07-APR-03. RESTART 17-APR-03. INTER.20-JUN-03/RESTART 30-JUN-03.
     Route: 048
     Dates: start: 20020826, end: 20030722
  2. DIDANOSINE EC [Suspect]
     Indication: HIV INFECTION
     Dosage: INTER 07-APR-03.REST 17-APR-03. INTER 20-JUN-03.REST ON 30-JUN-03. INTER ON 11-AUG-03
     Route: 048
     Dates: start: 20021121
  3. RITONAVIR [Suspect]
     Indication: HIV INFECTION
     Dosage: INTERRUPTED ON 07-APR-2003.  NEVER RESTARTED.
     Route: 048
     Dates: start: 20030313, end: 20030407
  4. TENOFOVIR [Suspect]
     Indication: HIV INFECTION
     Dosage: INTER.07-APR-03.RESTART17-APR-03.INTER.20-JUN-03.RESTART30-JUN-03.INTER.ON 11-AUG-2003.
     Route: 048
     Dates: start: 20020826
  5. ENFUVIRTIDE [Suspect]
     Indication: HIV INFECTION
     Dosage: INTER.20-JUN-03.RESTART30-JUN-03.INTER. ON 11-AUG-2003.
     Dates: start: 20030417
  6. CALCIUM CARBONATE [Concomitant]
     Route: 048
     Dates: start: 20030213
  7. CITALOPRAM HYDROBROMIDE [Concomitant]
     Route: 048
     Dates: start: 20030115
  8. MULTI-VITAMIN [Concomitant]
     Route: 048
     Dates: start: 20030116
  9. CAPSAICIN [Concomitant]
     Route: 061
     Dates: start: 20021219
  10. CLARITHROMYCIN [Concomitant]
     Route: 048
     Dates: start: 20021219
  11. DRONABINOL [Concomitant]
     Route: 048
     Dates: start: 20021219
  12. ETHAMBUTOL HCL [Concomitant]
     Route: 048
     Dates: start: 20021219
  13. FLUCONAZOLE [Concomitant]
     Route: 048
     Dates: start: 20021219
  14. GABAPENTIN [Concomitant]
     Route: 048
     Dates: start: 20021219
  15. HYDROCORTISONE CREAM [Concomitant]
     Route: 061
     Dates: start: 20021219
  16. RANITIDINE [Concomitant]
     Route: 048
     Dates: start: 20021219
  17. TRAZODONE HCL [Concomitant]
     Route: 048
     Dates: start: 20021219

REACTIONS (11)
  - ALANINE AMINOTRANSFERASE INCREASED [None]
  - ASPARTATE AMINOTRANSFERASE INCREASED [None]
  - BILIRUBIN CONJUGATED INCREASED [None]
  - BLOOD ALKALINE PHOSPHATASE INCREASED [None]
  - BLOOD BILIRUBIN INCREASED [None]
  - END STAGE AIDS [None]
  - HEPATIC ENZYME INCREASED [None]
  - KAPOSI'S SARCOMA [None]
  - PNEUMOCYSTIS CARINII PNEUMONIA [None]
  - PNEUMONIA [None]
  - RASH ERYTHEMATOUS [None]
